FAERS Safety Report 13172127 (Version 1)
Quarter: 2017Q1

REPORT INFORMATION
  Report Type: Spontaneous
  Country: US (occurrence: US)
  Receive Date: 20170131
  Receipt Date: 20170131
  Transmission Date: 20170428
  Serious: No
  Sender: FDA-Public Use
  Company Number: US-ABBVIE-16K-163-1737515-00

PATIENT
  Sex: Female
  Weight: 104.42 kg

DRUGS (6)
  1. TYLENOL WITH CODEIN #4 [Concomitant]
     Indication: PAIN
  2. IBUPROFEN. [Concomitant]
     Active Substance: IBUPROFEN
     Indication: INFLAMMATION
  3. HUMIRA [Suspect]
     Active Substance: ADALIMUMAB
     Indication: HIDRADENITIS
     Dosage: LOADING DOSE
     Route: 058
     Dates: start: 20160421, end: 20160421
  4. TRAMADOL. [Concomitant]
     Active Substance: TRAMADOL
     Indication: PAIN
  5. HUMIRA [Suspect]
     Active Substance: ADALIMUMAB
     Dosage: LOADING DOSE
     Route: 058
     Dates: start: 20160506, end: 20160506
  6. HUMIRA [Suspect]
     Active Substance: ADALIMUMAB
     Route: 058
     Dates: start: 201605, end: 20160706

REACTIONS (2)
  - Weight increased [Not Recovered/Not Resolved]
  - Infected cyst [Not Recovered/Not Resolved]

NARRATIVE: CASE EVENT DATE: 2016
